FAERS Safety Report 10068900 (Version 4)
Quarter: 2014Q2

REPORT INFORMATION
  Report Type: Report from Study
  Country: CA (occurrence: CA)
  Receive Date: 20140409
  Receipt Date: 20140425
  Transmission Date: 20141212
  Serious: No
  Sender: FDA-Public Use
  Company Number: PHHY2013CA129094

PATIENT
  Age: 52 Year
  Sex: Female

DRUGS (8)
  1. GILENYA [Suspect]
     Indication: RELAPSING-REMITTING MULTIPLE SCLEROSIS
     Dosage: 0.5 MG, DAILY
     Route: 048
     Dates: start: 20131107, end: 20140225
  2. WELLBUTRIN [Concomitant]
     Dosage: 150 MG, QD
  3. LIPITOR [Concomitant]
     Dosage: 10 MG, QD
  4. CONCERTA [Concomitant]
     Dosage: 36 MG, QD
  5. VESICARE [Concomitant]
     Dosage: 3 MG, QD
  6. VITAMIN D [Concomitant]
     Dosage: 10000 U, QW
  7. ATIVAN [Concomitant]
     Dosage: UNK UKN, PRN
  8. ATERAX [Concomitant]

REACTIONS (7)
  - Vision blurred [Unknown]
  - Visual acuity reduced [Unknown]
  - Ocular discomfort [Unknown]
  - Hypoaesthesia [Recovered/Resolved]
  - Influenza like illness [Unknown]
  - Cough [Unknown]
  - Headache [Unknown]
